FAERS Safety Report 12908738 (Version 3)
Quarter: 2016Q4

REPORT INFORMATION
  Report Type: Spontaneous
  Country: RU (occurrence: RU)
  Receive Date: 20161103
  Receipt Date: 20161210
  Transmission Date: 20170207
  Serious: Yes (Other)
  Sender: FDA-Public Use
  Company Number: RU-AMGEN-RUSSP2016153236

PATIENT
  Age: 43 Year
  Sex: Female

DRUGS (1)
  1. ENBREL [Suspect]
     Active Substance: ETANERCEPT
     Indication: SPONDYLITIS
     Dosage: 50 MG, WEEKLY
     Route: 058
     Dates: start: 201610

REACTIONS (1)
  - Haemoglobin decreased [Recovered/Resolved]
